FAERS Safety Report 25858654 (Version 1)
Quarter: 2025Q3

REPORT INFORMATION
  Report Type: Spontaneous
  Country: US (occurrence: None)
  Receive Date: 20250926
  Receipt Date: 20250926
  Transmission Date: 20251020
  Serious: Yes (Other)
  Sender: FDA-CTU
  Company Number: None

PATIENT
  Age: 76 Year
  Sex: Female

DRUGS (3)
  1. DUPIXENT [Suspect]
     Active Substance: DUPILUMAB
     Indication: Dermatitis atopic
     Route: 058
     Dates: start: 20250924, end: 20250926
  2. SPIRONOLACTONE [Concomitant]
     Active Substance: SPIRONOLACTONE
  3. Metoprolol ER Succinte [Concomitant]

REACTIONS (4)
  - Urticaria [None]
  - Pruritus [None]
  - Eye swelling [None]
  - Rash macular [None]

NARRATIVE: CASE EVENT DATE: 20250925
